FAERS Safety Report 6104381-2 (Version None)
Quarter: 2009Q1

REPORT INFORMATION
  Report Type: 
  Country: None (occurrence: None)
  Receive Date: 20090302
  Receipt Date: 20090216
  Transmission Date: 20090719
  Serious: Yes (Death)
  Sender: FDA-Public Use
  Company Number: 09DE001137

PATIENT
  Age: 41 Year
  Sex: Female

DRUGS (5)
  1. VALPROIC ACID [Suspect]
     Indication: ACUTE MYELOID LEUKAEMIA
     Dosage: 150 MG, QD, ORAL, 300 MG, QD
     Route: 048
  2. ALL-TRAN RETINOIC ACID [Concomitant]
  3. MAC (ATA-C/MITOXANTRONE) [Concomitant]
  4. MAMAC (ARA-C/M-AMSA) [Concomitant]
  5. ARAC/DAUNORUBICIN [Concomitant]

REACTIONS (2)
  - DISEASE PROGRESSION [None]
  - LEUKAEMIA RECURRENT [None]
